FAERS Safety Report 13337909 (Version 1)
Quarter: 2017Q1

REPORT INFORMATION
  Report Type: Spontaneous
  Country: US (occurrence: US)
  Receive Date: 20170315
  Receipt Date: 20170315
  Transmission Date: 20170428
  Serious: Yes (Hospitalization)
  Sender: FDA-Public Use
  Company Number: US-ELI_LILLY_AND_COMPANY-US201608000652

PATIENT
  Age: 32 Year
  Sex: Female

DRUGS (3)
  1. CYMBALTA [Suspect]
     Active Substance: DULOXETINE HYDROCHLORIDE
     Dosage: 60 MG, EACH MORNING
     Route: 065
  2. GEODON [Concomitant]
     Active Substance: ZIPRASIDONE HYDROCHLORIDE\ZIPRASIDONE MESYLATE
     Dosage: 80 MG, EACH EVENING
     Route: 065
  3. CYMBALTA [Suspect]
     Active Substance: DULOXETINE HYDROCHLORIDE
     Indication: PRODUCT USED FOR UNKNOWN INDICATION
     Dosage: UNK, UNKNOWN
     Route: 065

REACTIONS (18)
  - Dysphoria [Unknown]
  - Suicidal ideation [Unknown]
  - Paraesthesia [Unknown]
  - Vomiting [Unknown]
  - Agitation [Unknown]
  - Fatigue [Unknown]
  - Anxiety [Unknown]
  - Headache [Unknown]
  - Confusional state [Unknown]
  - Affect lability [Unknown]
  - Nausea [Unknown]
  - Seizure [Unknown]
  - Hallucination, auditory [Unknown]
  - Psychogenic seizure [Unknown]
  - Cyclothymic disorder [Unknown]
  - Seizure [Unknown]
  - Insomnia [Unknown]
  - Drug withdrawal syndrome [Unknown]

NARRATIVE: CASE EVENT DATE: 200911
